FAERS Safety Report 8180691-2 (Version None)
Quarter: 2012Q1

REPORT INFORMATION
  Report Type: 
  Country: None (occurrence: None)
  Receive Date: 20120302
  Receipt Date: 20120224
  Transmission Date: 20120608
  Serious: Yes (Hospitalization)
  Sender: FDA-Public Use
  Company Number: US-AMGEN-USASP2012011116

PATIENT
  Age: 52 Year
  Sex: Female

DRUGS (7)
  1. MELOXICAM [Concomitant]
     Dosage: UNK
  2. VERAPAMIL [Concomitant]
     Dosage: UNK
  3. ENBREL [Suspect]
     Indication: PRODUCT USED FOR UNKNOWN INDICATION
     Dosage: 50 MG, QWK
     Dates: start: 20120216
  4. ENBREL [Suspect]
     Dosage: 50 MG, QWK
     Dates: end: 20111101
  5. PREDNISONE TAB [Concomitant]
     Dosage: 5 MG, UNK
  6. NEURONTIN [Concomitant]
     Dosage: UNK
  7. GLIPIZIDE [Concomitant]
     Dosage: UNK

REACTIONS (6)
  - HYPERGLYCAEMIA [None]
  - NASOPHARYNGITIS [None]
  - DIABETES MELLITUS INADEQUATE CONTROL [None]
  - BRONCHITIS [None]
  - FUNGAL INFECTION [None]
  - INFECTION [None]
